FAERS Safety Report 25128068 (Version 2)
Quarter: 2025Q2

REPORT INFORMATION
  Report Type: Spontaneous
  Country: FR (occurrence: FR)
  Receive Date: 20250327
  Receipt Date: 20250408
  Transmission Date: 20250717
  Serious: Yes (Other)
  Sender: BRISTOL MYERS SQUIBB
  Company Number: FR-BRISTOL-MYERS SQUIBB COMPANY-2025-041305

PATIENT
  Age: 73 Year
  Sex: Female
  Weight: 70 kg

DRUGS (2)
  1. OPDIVO [Suspect]
     Active Substance: NIVOLUMAB
     Indication: Pleural mesothelioma malignant
     Dosage: (1 DOSES BEFORE DISCONTINUATION)
     Route: 042
     Dates: start: 20220616, end: 20220616
  2. YERVOY [Suspect]
     Active Substance: IPILIMUMAB
     Indication: Pleural mesothelioma malignant
     Dosage: (1 DOSES BEFORE DISCONTINUATION)
     Route: 042
     Dates: start: 20220616, end: 20220616

REACTIONS (5)
  - General physical health deterioration [Unknown]
  - Fatigue [Unknown]
  - Anxiety [Unknown]
  - Weight decreased [Unknown]
  - Respiratory distress [Unknown]

NARRATIVE: CASE EVENT DATE: 20220101
